FAERS Safety Report 14276724 (Version 1)
Quarter: 2017Q4

REPORT INFORMATION
  Report Type: Spontaneous
  Country: FR (occurrence: FR)
  Receive Date: 20171211
  Receipt Date: 20171211
  Transmission Date: 20180321
  Serious: Yes (Hospitalization, Other)
  Sender: FDA-Public Use
  Company Number: FR-OTSUKA-2015_009980

PATIENT
  Age: 29 Year
  Sex: Female

DRUGS (2)
  1. ABILIFY [Suspect]
     Active Substance: ARIPIPRAZOLE
     Indication: HYPOMANIA
     Dosage: 10 MG, QD
     Route: 048
     Dates: start: 201505, end: 201505
  2. ABILIFY [Suspect]
     Active Substance: ARIPIPRAZOLE
     Indication: EUPHORIC MOOD

REACTIONS (9)
  - Oral disorder [Recovered/Resolved]
  - Drug ineffective [Unknown]
  - Off label use [Unknown]
  - Vomiting [Recovered/Resolved with Sequelae]
  - Nausea [Recovered/Resolved]
  - Dysstasia [Recovered/Resolved]
  - Gait inability [Recovered/Resolved]
  - Eyelid disorder [Recovered/Resolved]
  - Sedation [Recovered/Resolved]

NARRATIVE: CASE EVENT DATE: 20150423
